FAERS Safety Report 20946271 (Version 1)
Quarter: 2022Q2

REPORT INFORMATION
  Report Type: Spontaneous
  Country: US (occurrence: None)
  Receive Date: 20220610
  Receipt Date: 20220610
  Transmission Date: 20220720
  Serious: Yes (Hospitalization)
  Sender: FDA-Public Use
  Company Number: None

PATIENT
  Age: 78 Year
  Sex: Female
  Weight: 100.7 kg

DRUGS (4)
  1. CAMPTOSAR [Suspect]
     Active Substance: IRINOTECAN HYDROCHLORIDE
     Dates: end: 20220527
  2. FLUOROURACIL [Suspect]
     Active Substance: FLUOROURACIL
     Dates: end: 20220527
  3. ELOXATIN [Suspect]
     Active Substance: OXALIPLATIN
     Dates: end: 20220527
  4. LEUCOVORIN CALCIUM [Suspect]
     Active Substance: LEUCOVORIN CALCIUM
     Dates: end: 20220527

REACTIONS (4)
  - Abdominal pain lower [None]
  - Nausea [None]
  - Hypophagia [None]
  - Diverticulitis [None]

NARRATIVE: CASE EVENT DATE: 20220607
